FAERS Safety Report 5576199-0 (Version None)
Quarter: 2007Q4

REPORT INFORMATION
  Report Type: 
  Country: None (occurrence: None)
  Receive Date: 20071228
  Receipt Date: 20071203
  Transmission Date: 20080405
  Serious: Yes (Hospitalization)
  Sender: FDA-Public Use
  Company Number: CA-BAYER-CA-2006-026069

PATIENT
  Age: 46 Year
  Sex: Female
  Weight: 109 kg

DRUGS (9)
  1. BETASERON [Suspect]
     Indication: RELAPSING-REMITTING MULTIPLE SCLEROSIS
     Dosage: TOTAL DAILY DOSE: 8 MIU
     Route: 058
     Dates: start: 20010628, end: 20060901
  2. GABAPENTIN [Suspect]
     Route: 048
  3. OXYCONTIN [Concomitant]
     Indication: PAIN
     Route: 048
  4. OXYCONTIN [Concomitant]
     Route: 048
  5. DILAUDID [Concomitant]
     Route: 048
  6. METFORMIN HCL [Concomitant]
     Route: 048
  7. FUROSEMIDE [Concomitant]
     Route: 048
  8. OXAZEPAM [Concomitant]
     Route: 048
  9. AMITRIPTLINE HCL [Concomitant]
     Route: 048

REACTIONS (5)
  - DYSPNOEA [None]
  - FALL [None]
  - GENERALISED OEDEMA [None]
  - HEPATIC ENZYME ABNORMAL [None]
  - HEPATIC NEOPLASM [None]
